FAERS Safety Report 7257275-3 (Version None)
Quarter: 2011Q1

REPORT INFORMATION
  Report Type: 
  Country: None (occurrence: None)
  Receive Date: 20110129
  Receipt Date: 20100701
  Transmission Date: 20110831
  Serious: No
  Sender: FDA-Public Use
  Company Number: US-ABBOTT-10P-163-0655585-00

PATIENT
  Sex: Male
  Weight: 78.996 kg

DRUGS (7)
  1. HUMIRA [Suspect]
     Indication: POLYARTHRITIS
     Dates: start: 20100503, end: 20100702
  2. RAMIPRIL [Concomitant]
     Indication: CORONARY ARTERY DISEASE
  3. PREVACID [Concomitant]
     Indication: GASTROOESOPHAGEAL REFLUX DISEASE
  4. ADVIL [Concomitant]
     Indication: PRODUCT USED FOR UNKNOWN INDICATION
  5. LEVAQUIN [Concomitant]
     Indication: PRODUCT USED FOR UNKNOWN INDICATION
  6. UNKNOWN MULTIVITAMIN [Concomitant]
     Indication: VITAMIN SUPPLEMENTATION
  7. PERCOCET [Concomitant]
     Indication: PAIN

REACTIONS (6)
  - HEADACHE [None]
  - PHOTOPHOBIA [None]
  - SINUSITIS [None]
  - PHONOPHOBIA [None]
  - PYREXIA [None]
  - NECK PAIN [None]
